FAERS Safety Report 6250074-0 (Version None)
Quarter: 2009Q2

REPORT INFORMATION
  Report Type: 
  Country: None (occurrence: None)
  Receive Date: 20090625
  Receipt Date: 20090615
  Transmission Date: 20091009
  Serious: Yes (Life-Threatening, Hospitalization)
  Sender: FDA-Public Use
  Company Number: ADE2009-0668

PATIENT
  Age: 77 Year
  Sex: Male
  Weight: 76 kg

DRUGS (11)
  1. SIMVASTATIN [Suspect]
     Indication: CEREBROVASCULAR ACCIDENT
     Dosage: 40 MG, DAILY, ORAL
     Route: 048
     Dates: start: 20081001, end: 20090513
  2. AMIODARONE HCL [Concomitant]
  3. AMLODIPINE [Concomitant]
  4. ASPIRIN [Concomitant]
  5. AMOXICILLIN AND CLAVULANATE POTASSIUM [Concomitant]
  6. GLYCERYL TRINITRATE [Concomitant]
  7. GOSERELIN [Concomitant]
  8. RAMIPRIL [Concomitant]
  9. LEVOTHYROXINE SODIUM [Concomitant]
  10. TIMOLOL MALEATE [Concomitant]
  11. SIMVASTATIN [Concomitant]

REACTIONS (1)
  - MYOPATHY [None]
